FAERS Safety Report 8004434-8 (Version None)
Quarter: 2011Q4

REPORT INFORMATION
  Report Type: 
  Country: None (occurrence: None)
  Receive Date: 20111221
  Receipt Date: 20111221
  Transmission Date: 20120403
  Serious: Yes (Disabling)
  Sender: FDA-Public Use
  Company Number: None

PATIENT
  Sex: Male
  Weight: 68.0396 kg

DRUGS (2)
  1. TIMOPTIC [Suspect]
     Indication: CONJUNCTIVITIS INFECTIVE
  2. XALATAN [Suspect]
     Indication: GLAUCOMA TRAUMATIC

REACTIONS (3)
  - ASTHENIA [None]
  - DIZZINESS [None]
  - PUPILLARY DISORDER [None]
